FAERS Safety Report 9540953 (Version 5)
Quarter: 2013Q4

REPORT INFORMATION
  Report Type: Spontaneous
  Country: CN (occurrence: CN)
  Receive Date: 20130921
  Receipt Date: 20131126
  Transmission Date: 20140711
  Serious: Yes (Death)
  Sender: FDA-Public Use
  Company Number: CN-JNJFOC-20130908838

PATIENT
  Age: 4 Month
  Sex: Female

DRUGS (2)
  1. TYLENOL INFANT DROPS 15 ML [Suspect]
     Route: 048
  2. TYLENOL INFANT DROPS 15 ML [Suspect]
     Indication: PYREXIA
     Route: 048

REACTIONS (2)
  - Anaphylactic shock [Fatal]
  - Vomiting [Unknown]
